FAERS Safety Report 5875602-6 (Version None)
Quarter: 2008Q3

REPORT INFORMATION
  Report Type: 
  Country: None (occurrence: None)
  Receive Date: 20080909
  Receipt Date: 20080802
  Transmission Date: 20090109
  Serious: Yes (Hospitalization)
  Sender: FDA-Public Use
  Company Number: BR-ABBOTT-07P-020-0364355-00

PATIENT
  Sex: Male

DRUGS (9)
  1. RITONAVIR SOFT GELATIN CAPSULES [Suspect]
     Indication: HIV INFECTION
     Route: 048
     Dates: start: 20060525, end: 20070322
  2. TIPRANAVIR [Concomitant]
     Indication: HIV INFECTION
     Route: 048
     Dates: start: 20060525, end: 20070322
  3. FERRIC HYDROXIDE POLYMALTOSE COMPLEX [Concomitant]
     Indication: ANAEMIA
     Route: 042
     Dates: start: 20070315
  4. VIREAD [Concomitant]
     Indication: HIV INFECTION
     Route: 048
     Dates: start: 20060525, end: 20070322
  5. LAMIVUDINE [Concomitant]
     Indication: HIV INFECTION
     Route: 048
     Dates: start: 20060525, end: 20070322
  6. ENFUVIRTIDE [Concomitant]
     Indication: HIV INFECTION
     Route: 058
     Dates: start: 20060525, end: 20070322
  7. ERITROPOIETIN [Concomitant]
     Indication: ANAEMIA
     Route: 058
     Dates: start: 20070315
  8. ACETAMINOPHEN [Concomitant]
     Indication: PYREXIA
     Route: 048
     Dates: start: 20070315
  9. ACETAMINOPHEN [Concomitant]
     Indication: PAIN

REACTIONS (1)
  - ASCITES [None]
